FAERS Safety Report 11628799 (Version 1)
Quarter: 2015Q4

REPORT INFORMATION
  Report Type: Spontaneous
  Country: US (occurrence: None)
  Receive Date: 20151013
  Receipt Date: 20151013
  Transmission Date: 20160304
  Serious: Yes (Other)
  Sender: FDA-Public Use
  Company Number: None

PATIENT
  Age: 73 Year
  Sex: Male
  Weight: 77.11 kg

DRUGS (2)
  1. CRESTOR [Suspect]
     Active Substance: ROSUVASTATIN CALCIUM
     Indication: BLOOD CHOLESTEROL INCREASED
     Route: 048
     Dates: start: 20131001, end: 20150801
  2. SUPER UBIQUINOL [Concomitant]

REACTIONS (5)
  - Muscular weakness [None]
  - Confusional state [None]
  - Hypersomnia [None]
  - Memory impairment [None]
  - Myalgia [None]

NARRATIVE: CASE EVENT DATE: 20150901
